FAERS Safety Report 5816542-8 (Version None)
Quarter: 2008Q3

REPORT INFORMATION
  Report Type: 
  Country: None (occurrence: None)
  Receive Date: 20080716
  Receipt Date: 20070912
  Transmission Date: 20090109
  Serious: Yes (Other)
  Sender: FDA-Public Use
  Company Number: 2211100-US-JNJFOC-20070805112

PATIENT
  Age: 27 Year
  Sex: Male

DRUGS (6)
  1. MOTRIN IB [Suspect]
     Indication: PAIN
     Dates: start: 20070821, end: 20070823
  2. TYLENOL (CAPLET) [Suspect]
     Indication: PAIN
     Dates: start: 20070821, end: 20070823
  3. ACETAMINOPHEN [Suspect]
     Indication: PAIN
     Dates: start: 20070821, end: 20070823
  4. ADVIL [Suspect]
     Indication: PAIN
     Dates: start: 20070821, end: 20070823
  5. ADVIL PM [Suspect]
     Indication: PAIN
     Dates: start: 20070821, end: 20070823
  6. ASPIRIN [Suspect]
     Indication: PAIN
     Dates: start: 20070821, end: 20070823

REACTIONS (4)
  - DIZZINESS [None]
  - DRUG ADMINISTRATION ERROR [None]
  - HAEMATEMESIS [None]
  - INTENTIONAL OVERDOSE [None]
